FAERS Safety Report 8053844-1 (Version None)
Quarter: 2012Q1

REPORT INFORMATION
  Report Type: 
  Country: None (occurrence: None)
  Receive Date: 20120118
  Receipt Date: 20120117
  Transmission Date: 20120608
  Serious: Yes (Life-Threatening, Hospitalization, Other)
  Sender: FDA-Public Use
  Company Number: DE-PFIZER INC-2011101652

PATIENT
  Age: 84 Year
  Sex: Female
  Weight: 58 kg

DRUGS (8)
  1. CLONAZEPAM [Concomitant]
     Indication: PRODUCT USED FOR UNKNOWN INDICATION
     Dosage: 1 MG, 1X/DAY
     Route: 048
     Dates: start: 20100101
  2. BISOPROLOL FUMARATE [Concomitant]
     Indication: PRODUCT USED FOR UNKNOWN INDICATION
     Dosage: 5 MG, 1X/DAY
     Route: 048
     Dates: start: 20100101
  3. GALANTAMINE HYDROBROMIDE [Concomitant]
     Indication: DEMENTIA
     Dosage: 16 MG, 1X/DAY
     Route: 048
     Dates: start: 20100101
  4. CIPROFLOXACIN [Suspect]
     Indication: URINARY TRACT INFECTION
     Dosage: 500 MG, 2X/DAY
     Route: 048
     Dates: start: 20110106, end: 20110109
  5. MCP ^ALIUD PHARMA^ [Concomitant]
     Indication: PRODUCT USED FOR UNKNOWN INDICATION
     Dosage: 20 DROPS TRICE DAILY
     Route: 048
     Dates: start: 20100101
  6. RAMIPRIL [Suspect]
     Dosage: 2.5 MG, 2X/DAY
     Route: 048
     Dates: start: 20100101, end: 20110111
  7. TORSEMIDE [Suspect]
     Indication: PRODUCT USED FOR UNKNOWN INDICATION
     Dosage: 5 MG, 2X/DAY
     Route: 048
     Dates: start: 20100101, end: 20110101
  8. ROCALTROL [Concomitant]
     Indication: PRODUCT USED FOR UNKNOWN INDICATION
     Dosage: 25 UG, 1X/DAY
     Route: 048
     Dates: start: 20100101

REACTIONS (2)
  - RENAL FAILURE ACUTE [None]
  - DEHYDRATION [None]
